FAERS Safety Report 21973421 (Version 1)
Quarter: 2023Q1

REPORT INFORMATION
  Report Type: Spontaneous
  Country: US (occurrence: None)
  Receive Date: 20230207
  Receipt Date: 20230207
  Transmission Date: 20230418
  Serious: Yes (Hospitalization)
  Sender: FDA-Public Use
  Company Number: None

PATIENT
  Age: 59 Year
  Sex: Female
  Weight: 58.06 kg

DRUGS (11)
  1. RETEVMO [Suspect]
     Active Substance: SELPERCATINIB
     Dosage: FREQUENCY : EVERY 12 HOURS;?
     Route: 048
  2. COLCHICINE [Concomitant]
     Active Substance: COLCHICINE
  3. DICLOFENAC [Concomitant]
     Active Substance: DICLOFENAC
  4. DOCUSATE SODIUM [Concomitant]
     Active Substance: DOCUSATE SODIUM
  5. IMODIUM [Concomitant]
     Active Substance: LOPERAMIDE HYDROCHLORIDE
  6. MELATONIN [Concomitant]
     Active Substance: MELATONIN
  7. OXYCODONE [Concomitant]
     Active Substance: OXYCODONE
  8. PERCOCET [Concomitant]
     Active Substance: ACETAMINOPHEN\OXYCODONE HYDROCHLORIDE
  9. SELSUN BLUE EXT. LOTION [Concomitant]
  10. TYLENOL [Concomitant]
     Active Substance: ACETAMINOPHEN
  11. VITAMIN D3 [Concomitant]
     Active Substance: CHOLECALCIFEROL

REACTIONS (3)
  - Cerebrovascular accident [None]
  - Pleural effusion [None]
  - Pericardial effusion [None]
